FAERS Safety Report 23947606 (Version 1)
Quarter: 2024Q2

REPORT INFORMATION
  Report Type: Spontaneous
  Country: US (occurrence: None)
  Receive Date: 20240606
  Receipt Date: 20240606
  Transmission Date: 20240716
  Serious: Yes (Hospitalization, Other)
  Sender: FDA-Public Use
  Company Number: None

PATIENT
  Age: 59 Year
  Sex: Female
  Weight: 117.9 kg

DRUGS (7)
  1. REMDESIVIR [Suspect]
     Active Substance: REMDESIVIR
     Indication: COVID-19
     Dosage: 200 MG DAILY INTRAVENOUS
     Route: 042
     Dates: start: 20240605, end: 20240605
  2. Levofloxacin 750 mg IV every 24 hours [Concomitant]
     Dates: start: 20240604, end: 20240604
  3. Anastrozole 1 mg PO daily [Concomitant]
     Dates: start: 20240605
  4. Budesonide-formoterol 126-4.5 mcg/actuation 2 puffs twice daily [Concomitant]
     Dates: start: 20240605
  5. Enoxaparin 40 mg subcutaneously twice daily [Concomitant]
     Dates: start: 20240605
  6. Fentanyl 75 mcg/hr 1 patch every 3 days [Concomitant]
     Dates: start: 20240605
  7. Montelukast 10 mg tablet PO daily [Concomitant]
     Dates: start: 20240605

REACTIONS (2)
  - Dyspnoea [None]
  - Erythema [None]

NARRATIVE: CASE EVENT DATE: 20240605
